FAERS Safety Report 12956513 (Version 2)
Quarter: 2017Q1

REPORT INFORMATION
  Report Type: Spontaneous
  Country: US (occurrence: US)
  Receive Date: 20161118
  Receipt Date: 20170221
  Transmission Date: 20170428
  Serious: No
  Sender: FDA-Public Use
  Company Number: US-009507513-1611USA004909

PATIENT
  Age: 28 Year
  Sex: Female
  Weight: 84.35 kg

DRUGS (4)
  1. ZOLOFT [Concomitant]
     Active Substance: SERTRALINE HYDROCHLORIDE
     Indication: MENTAL DISORDER
     Dosage: 100 MG, QD
     Route: 048
  2. REXULTI [Concomitant]
     Active Substance: BREXPIPRAZOLE
     Indication: MENTAL DISORDER
     Dosage: 2 MG, QD
     Route: 048
  3. NEXPLANON [Suspect]
     Active Substance: ETONOGESTREL
     Indication: CONTRACEPTION
     Dosage: 68 MG, UNK
     Route: 059
     Dates: start: 20161014
  4. TRILEPTAL [Concomitant]
     Active Substance: OXCARBAZEPINE
     Indication: MENTAL DISORDER
     Dosage: 100 MG, QD
     Route: 048

REACTIONS (4)
  - Dark circles under eyes [Recovered/Resolved]
  - Implant site urticaria [Recovered/Resolved]
  - Swelling face [Recovered/Resolved]
  - Implant site rash [Recovered/Resolved]

NARRATIVE: CASE EVENT DATE: 2016
